FAERS Safety Report 5900007-9 (Version None)
Quarter: 2008Q3

REPORT INFORMATION
  Report Type: 
  Country: None (occurrence: None)
  Receive Date: 20080925
  Receipt Date: 20080925
  Transmission Date: 20090109
  Serious: Yes (Other)
  Sender: FDA-Public Use
  Company Number: None

PATIENT
  Age: 42 Year
  Sex: Male

DRUGS (1)
  1. ELIDEL [Suspect]
     Dosage: APPLY BID X1 APPLICATION
     Dates: start: 20080923

REACTIONS (3)
  - APPLICATION SITE PAIN [None]
  - BURNING SENSATION [None]
  - FEELING HOT [None]
